FAERS Safety Report 17803974 (Version 2)
Quarter: 2020Q2

REPORT INFORMATION
  Report Type: Spontaneous
  Country: US (occurrence: US)
  Receive Date: 20200519
  Receipt Date: 20200615
  Transmission Date: 20200714
  Serious: Yes (Other)
  Sender: FDA-Public Use
  Company Number: US-IPSEN BIOPHARMACEUTICALS, INC.-2020-08807

PATIENT
  Age: 53 Year
  Sex: Female

DRUGS (5)
  1. SOMATULINE DEPOT [Suspect]
     Active Substance: LANREOTIDE ACETATE
     Indication: NEUROENDOCRINE TUMOUR
     Dosage: 120 MG
     Route: 058
     Dates: start: 201805
  2. SOMATULINE DEPOT [Suspect]
     Active Substance: LANREOTIDE ACETATE
     Indication: ANAEMIA
  3. SOMATULINE DEPOT [Suspect]
     Active Substance: LANREOTIDE ACETATE
     Indication: CARCINOID TUMOUR OF THE STOMACH
  4. SOMATULINE DEPOT [Suspect]
     Active Substance: LANREOTIDE ACETATE
     Indication: IRON DEFICIENCY ANAEMIA
  5. SOMATULINE DEPOT [Suspect]
     Active Substance: LANREOTIDE ACETATE
     Indication: OFF LABEL USE

REACTIONS (2)
  - Hospice care [Unknown]
  - Off label use [Unknown]

NARRATIVE: CASE EVENT DATE: 201805
